FAERS Safety Report 17155635 (Version 1)
Quarter: 2019Q4

REPORT INFORMATION
  Report Type: Spontaneous
  Country: US (occurrence: US)
  Receive Date: 20191215
  Receipt Date: 20191215
  Transmission Date: 20200122
  Serious: No
  Sender: FDA-Public Use
  Company Number: US-ENDO PHARMACEUTICALS INC-2019-102411

PATIENT
  Age: 59 Year
  Sex: Male
  Weight: 90.7 kg

DRUGS (2)
  1. XIAFLEX [Suspect]
     Active Substance: COLLAGENASE CLOSTRIDIUM HISTOLYTICUM
     Dosage: UNK FIRST CYCLE; FIRST INJECTION
     Route: 026
     Dates: start: 201901
  2. XIAFLEX [Suspect]
     Active Substance: COLLAGENASE CLOSTRIDIUM HISTOLYTICUM
     Indication: PEYRONIE^S DISEASE
     Dosage: UNK FIRST CYCLE; SECOND INJECTION
     Route: 026
     Dates: start: 201901

REACTIONS (2)
  - Blister rupture [Recovered/Resolved]
  - Penile blister [Recovered/Resolved]

NARRATIVE: CASE EVENT DATE: 201901
